FAERS Safety Report 5357929-X (Version None)
Quarter: 2007Q2

REPORT INFORMATION
  Report Type: 
  Country: None (occurrence: None)
  Receive Date: 20070614
  Receipt Date: 20070601
  Transmission Date: 20071010
  Serious: Yes (Death)
  Sender: FDA-Public Use
  Company Number: US-ELI_LILLY_AND_COMPANY-US98010442A

PATIENT
  Age: 63 Year
  Sex: Male
  Weight: 60.909 kg

DRUGS (3)
  1. ZYPREXA [Suspect]
     Indication: SCHIZOPHRENIA
     Dosage: 10 MG, DAILY (1/D)
     Route: 048
     Dates: start: 19970101, end: 19971210
  2. HALOPERIDOL [Concomitant]
     Dosage: UNK, UNKNOWN
     Dates: start: 19960701, end: 19970101
  3. COGENTIN [Concomitant]
     Dosage: UNK, UNKNOWN
     Dates: start: 19960701, end: 19970101

REACTIONS (3)
  - COMPLETED SUICIDE [None]
  - DIZZINESS [None]
  - DRUG TOXICITY [None]
